FAERS Safety Report 20724189 (Version 1)
Quarter: 2022Q2

REPORT INFORMATION
  Report Type: Spontaneous
  Country: US (occurrence: None)
  Receive Date: 20220419
  Receipt Date: 20220419
  Transmission Date: 20220720
  Serious: No
  Sender: FDA-Public Use
  Company Number: US-Merck Healthcare KGaA-9312814

PATIENT
  Sex: Female

DRUGS (1)
  1. REBIF [Suspect]
     Active Substance: INTERFERON BETA-1A
     Indication: Product used for unknown indication

REACTIONS (4)
  - Nausea [Unknown]
  - Vomiting [Unknown]
  - Grip strength decreased [Unknown]
  - Trismus [Unknown]
